FAERS Safety Report 24118513 (Version 1)
Quarter: 2024Q3

REPORT INFORMATION
  Report Type: Spontaneous
  Country: GB (occurrence: GB)
  Receive Date: 20240722
  Receipt Date: 20240722
  Transmission Date: 20241017
  Serious: Yes (Hospitalization)
  Sender: EPIC PHARM
  Company Number: GB-EPICPHARMA-GB-2024EPCLIT00832

PATIENT
  Age: 15 Year
  Sex: Male

DRUGS (3)
  1. LORAZEPAM [Suspect]
     Active Substance: LORAZEPAM
     Indication: Autism spectrum disorder
     Route: 065
     Dates: start: 20230710, end: 202307
  2. LORAZEPAM [Suspect]
     Active Substance: LORAZEPAM
     Dosage: 0.5 MG TDS AND INCREASED TO 1 MG QDS
     Route: 065
     Dates: start: 20231006, end: 20231018
  3. RISPERIDONE [Concomitant]
     Active Substance: RISPERIDONE
     Indication: Product used for unknown indication
     Dosage: TITRATED UP TO MAXIMUM 2MG
     Route: 065
     Dates: start: 20230710, end: 202307

REACTIONS (4)
  - Sexually inappropriate behaviour [Recovering/Resolving]
  - Paradoxical drug reaction [Recovering/Resolving]
  - Aggression [Recovering/Resolving]
  - Product use in unapproved indication [Unknown]

NARRATIVE: CASE EVENT DATE: 20230101
